FAERS Safety Report 8596719-1 (Version None)
Quarter: 2012Q3

REPORT INFORMATION
  Report Type: 
  Country: None (occurrence: None)
  Receive Date: 20120802
  Receipt Date: 20120718
  Transmission Date: 20120928
  Serious: Yes (Life-Threatening, Hospitalization, Congenital Anomaly, Other)
  Sender: FDA-Public Use
  Company Number: GER/GER/12/0025129

PATIENT
  Sex: Male
  Weight: 2 kg

DRUGS (3)
  1. CITALOPRAM HYDROBROMIDE [Suspect]
     Indication: PRODUCT USED FOR UNKNOWN INDICATION
     Dosage: 40 MG, 1 D, TRANSPLACENTAL
     Route: 064
     Dates: end: 20111118
  2. FOLSAURE (FOLIC ACID) [Concomitant]
  3. VENLAFAXINE HCL [Suspect]
     Indication: PRODUCT USED FOR UNKNOWN INDICATION
     Dosage: 150 MG, 1 D, TRANSPLACENTAL
     Route: 064

REACTIONS (11)
  - BRADYCARDIA NEONATAL [None]
  - MATERNAL DRUGS AFFECTING FOETUS [None]
  - HAEMANGIOMA CONGENITAL [None]
  - FEEDING DISORDER [None]
  - ATRIAL SEPTAL DEFECT [None]
  - APPARENT LIFE THREATENING EVENT [None]
  - PATENT DUCTUS ARTERIOSUS [None]
  - TEMPERATURE REGULATION DISORDER [None]
  - NEONATAL RESPIRATORY DISTRESS SYNDROME [None]
  - LONG QT SYNDROME [None]
  - CEREBRAL HAEMORRHAGE [None]
